FAERS Safety Report 5121866-6 (Version None)
Quarter: 2006Q4

REPORT INFORMATION
  Report Type: 
  Country: None (occurrence: None)
  Receive Date: 20061006
  Receipt Date: 20060913
  Transmission Date: 20070319
  Serious: Yes (Other)
  Sender: FDA-Public Use
  Company Number: JP-MERCK-0609USA03110

PATIENT
  Age: 58 Year
  Sex: Male

DRUGS (5)
  1. PROPECIA [Suspect]
     Indication: MALE PATTERN BALDNESS
     Route: 048
     Dates: end: 20060905
  2. WARFARIN SODIUM [Suspect]
     Indication: THROMBOSIS PROPHYLAXIS
     Route: 048
     Dates: start: 19920101, end: 20060829
  3. WARFARIN SODIUM [Suspect]
     Route: 065
     Dates: start: 20060905
  4. TICLOPIDINE HYDROCHLORIDE [Concomitant]
     Indication: THROMBOSIS PROPHYLAXIS
     Route: 048
     Dates: start: 19920101, end: 20060829
  5. BUFFERIN [Concomitant]
     Indication: THROMBOSIS PROPHYLAXIS
     Route: 048
     Dates: start: 19920101, end: 20060829

REACTIONS (2)
  - HAEMATURIA [None]
  - HYDRONEPHROSIS [None]
